FAERS Safety Report 6791122-9 (Version None)
Quarter: 2010Q2

REPORT INFORMATION
  Report Type: 
  Country: None (occurrence: None)
  Receive Date: 20100624
  Receipt Date: 20100617
  Transmission Date: 20101027
  Serious: No
  Sender: FDA-Public Use
  Company Number: JP-BAYER-200812952BYL

PATIENT
  Age: 67 Year
  Sex: Male
  Weight: 70 kg

DRUGS (11)
  1. NEXAVAR [Suspect]
     Indication: RENAL CELL CARCINOMA
     Dosage: UNIT DOSE: 200 MG
     Route: 048
     Dates: start: 20080819
  2. SHAKUYAKU-KANZO-TO [Suspect]
     Indication: BACK PAIN
     Route: 048
     Dates: start: 20090615, end: 20090628
  3. MEVALOTIN [Concomitant]
     Route: 048
     Dates: start: 20080819
  4. ZYLORIC [Concomitant]
     Route: 048
     Dates: start: 20080819
  5. BUFFERIN [Concomitant]
     Dosage: UNIT DOSE: 81 MG
     Route: 048
     Dates: start: 20080819
  6. NORVASC [Concomitant]
     Route: 048
     Dates: start: 20080819
  7. TIZANIDINE HCL [Concomitant]
     Route: 048
     Dates: start: 20080819
  8. CYANOCOBALAMIN [Concomitant]
     Route: 048
     Dates: start: 20080819
  9. OPALMON [Concomitant]
     Indication: BACK PAIN
     Route: 048
     Dates: start: 20080819
  10. LOXONIN [Concomitant]
     Route: 048
     Dates: start: 20080819
  11. PL [Concomitant]
     Indication: NASOPHARYNGITIS
     Route: 048
     Dates: start: 20090604, end: 20090606

REACTIONS (8)
  - ABDOMINAL DISTENSION [None]
  - BLOOD PRESSURE INCREASED [None]
  - C-REACTIVE PROTEIN INCREASED [None]
  - DIARRHOEA [None]
  - ERYTHEMA [None]
  - HEPATIC FUNCTION ABNORMAL [None]
  - LOCAL SWELLING [None]
  - STOMATITIS [None]
